FAERS Safety Report 7030171-2 (Version None)
Quarter: 2010Q4

REPORT INFORMATION
  Report Type: 
  Country: None (occurrence: None)
  Receive Date: 20101006
  Receipt Date: 20100923
  Transmission Date: 20110411
  Serious: Yes (Hospitalization, Other)
  Sender: FDA-Public Use
  Company Number: US-ELI_LILLY_AND_COMPANY-US201006006806

PATIENT
  Sex: Female

DRUGS (6)
  1. FORTEO [Suspect]
     Indication: OSTEOPOROSIS
     Dosage: 20 UG, DAILY (1/D)
     Dates: end: 20100525
  2. LIPITOR [Concomitant]
  3. ARICEPT [Concomitant]
  4. ASPIRIN [Concomitant]
  5. CALCIUM [Concomitant]
     Dosage: UNK, UNK
  6. CENTRUM SILVER [Concomitant]

REACTIONS (5)
  - DEMENTIA [None]
  - FALL [None]
  - GENERAL PHYSICAL HEALTH DETERIORATION [None]
  - PARKINSON'S DISEASE [None]
  - STERNAL FRACTURE [None]
